FAERS Safety Report 6983809-X (Version None)
Quarter: 2010Q3

REPORT INFORMATION
  Report Type: 
  Country: None (occurrence: None)
  Receive Date: 20100914
  Receipt Date: 20090323
  Transmission Date: 20110219
  Serious: No
  Sender: FDA-Public Use
  Company Number: US-WYE-H08674309

PATIENT
  Sex: Male

DRUGS (2)
  1. ADVIL LIQUI-GELS [Suspect]
     Indication: PAIN IN EXTREMITY
     Route: 048
  2. ETHANOL [Suspect]
     Dosage: UNKNOWN
     Route: 048

REACTIONS (3)
  - BARBITURATES POSITIVE [None]
  - DRUG SCREEN FALSE POSITIVE [None]
  - OVERDOSE [None]
